FAERS Safety Report 7442323-8 (Version None)
Quarter: 2011Q2

REPORT INFORMATION
  Report Type: 
  Country: None (occurrence: None)
  Receive Date: 20110425
  Receipt Date: 20110425
  Transmission Date: 20111010
  Serious: No
  Sender: FDA-Public Use
  Company Number: None

PATIENT
  Age: 48 Year
  Sex: Female
  Weight: 77.1115 kg

DRUGS (1)
  1. ARIPIPRAZOLE [Suspect]
     Dosage: 30MG DAILY PO
     Route: 048

REACTIONS (1)
  - EXTRAPYRAMIDAL DISORDER [None]
